FAERS Safety Report 19497780 (Version 2)
Quarter: 2022Q3

REPORT INFORMATION
  Report Type: Other
  Country: IT (occurrence: None)
  Receive Date: 20210706
  Receipt Date: 20220831
  Transmission Date: 20221026
  Serious: Yes (Other)
  Sender: FDA-Public Use
  Company Number: IT-ROCHE-2862410

PATIENT
  Age: 76 Year
  Sex: Female

DRUGS (4)
  1. RIBAVIRIN [Suspect]
     Active Substance: RIBAVIRIN
     Indication: B-cell lymphoma
     Dosage: (1,000 MG IF , { 75 KG, OR 1200 MG IF }/=75 KG OF BODY WEIGHT DIVIDED IN TWO DAILY DOSES) FOR 12 WEE
     Route: 065
  2. RIBAVIRIN [Suspect]
     Active Substance: RIBAVIRIN
     Indication: Hepatitis C
  3. SOFOSBUVIR [Suspect]
     Active Substance: SOFOSBUVIR
     Indication: B-cell lymphoma
     Route: 065
  4. SOFOSBUVIR [Suspect]
     Active Substance: SOFOSBUVIR
     Indication: Hepatitis C

REACTIONS (1)
  - Breast cancer [Unknown]
